FAERS Safety Report 6370675-9 (Version None)
Quarter: 2009Q3

REPORT INFORMATION
  Report Type: 
  Country: None (occurrence: None)
  Receive Date: 20090923
  Receipt Date: 20071213
  Transmission Date: 20100115
  Serious: Yes (Other)
  Sender: FDA-Public Use
  Company Number: US-ASTRAZENECA-2006UW25464

PATIENT
  Age: 16027 Day
  Sex: Male
  Weight: 76.2 kg

DRUGS (15)
  1. SEROQUEL [Suspect]
     Indication: ANXIETY
     Dosage: 25MG-300MG
     Route: 048
     Dates: start: 20010630
  2. SEROQUEL [Suspect]
     Indication: DEPRESSION
     Dosage: 25MG-300MG
     Route: 048
     Dates: start: 20010630
  3. SEROQUEL [Suspect]
     Indication: BIPOLAR DISORDER
     Dosage: 25MG-300MG
     Route: 048
     Dates: start: 20010630
  4. SEROQUEL [Suspect]
     Dosage: 25 MG, 200 MG, 300 MG, EVERY DAY
     Route: 048
     Dates: start: 20011009, end: 20050111
  5. SEROQUEL [Suspect]
     Dosage: 25 MG, 200 MG, 300 MG, EVERY DAY
     Route: 048
     Dates: start: 20011009, end: 20050111
  6. SEROQUEL [Suspect]
     Dosage: 25 MG, 200 MG, 300 MG, EVERY DAY
     Route: 048
     Dates: start: 20011009, end: 20050111
  7. LORAZEPAM [Concomitant]
     Route: 048
     Dates: start: 20010514
  8. PAXIL [Concomitant]
     Route: 048
     Dates: start: 20011009
  9. ATENOLOL [Concomitant]
     Route: 048
     Dates: start: 20011009
  10. NEURONTIN [Concomitant]
     Dates: start: 20030815
  11. DEPAKOTE [Concomitant]
     Route: 048
     Dates: start: 20030815
  12. LEXAPRO [Concomitant]
     Route: 048
     Dates: start: 20030815
  13. EFFEXOR XR [Concomitant]
     Route: 048
     Dates: start: 20030815
  14. NEXIUM [Concomitant]
     Route: 048
     Dates: start: 20030815
  15. LASIX [Concomitant]
     Route: 048
     Dates: start: 20030815

REACTIONS (3)
  - DIABETES MELLITUS [None]
  - PANCREATITIS [None]
  - TYPE 2 DIABETES MELLITUS [None]
